FAERS Safety Report 9340154 (Version 1)
Quarter: 2013Q2

REPORT INFORMATION
  Report Type: Other
  Country: DE (occurrence: DE)
  Receive Date: 20130610
  Receipt Date: 20130610
  Transmission Date: 20140414
  Serious: Yes (Congenital Anomaly, Other)
  Sender: FDA-Public Use
  Company Number: DE-NICOBRDEVP-2013-09798

PATIENT
  Sex: Male
  Weight: 1.77 kg

DRUGS (2)
  1. SERTRALINE HYDROCHLORIDE (UNKNOWN) [Suspect]
     Indication: DEPRESSION
     Dosage: 50 MG, DAILY (-25)
     Route: 064
     Dates: start: 20090125, end: 20091007
  2. FEMIBION [Concomitant]
     Indication: PROPHYLAXIS OF NEURAL TUBE DEFECT
     Dosage: 0.4 MG, DAILY
     Route: 064

REACTIONS (4)
  - Small for dates baby [Recovered/Resolved]
  - Naevus flammeus [Unknown]
  - Haemangioma congenital [Unknown]
  - Feeding disorder neonatal [Recovered/Resolved]
